FAERS Safety Report 7395929-9 (Version None)
Quarter: 2011Q2

REPORT INFORMATION
  Report Type: 
  Country: None (occurrence: None)
  Receive Date: 20110406
  Receipt Date: 20110328
  Transmission Date: 20111010
  Serious: Yes (Hospitalization)
  Sender: FDA-Public Use
  Company Number: US-BIOGENIDEC-2011BI009408

PATIENT
  Sex: Male

DRUGS (2)
  1. AVONEX [Suspect]
     Indication: MULTIPLE SCLEROSIS
     Route: 030
     Dates: start: 19960501, end: 20080101
  2. AVONEX [Suspect]
     Route: 030
     Dates: start: 20100401

REACTIONS (2)
  - ARTERIOSCLEROSIS CORONARY ARTERY [None]
  - LEFT VENTRICULAR FAILURE [None]
